APPROVED DRUG PRODUCT: ZOLPIDEM TARTRATE
Active Ingredient: ZOLPIDEM TARTRATE
Strength: 5MG
Dosage Form/Route: TABLET;SUBLINGUAL
Application: A201509 | Product #001 | TE Code: AB
Applicant: PH HEALTH LTD
Approved: Aug 1, 2016 | RLD: No | RS: No | Type: RX